FAERS Safety Report 9416387 (Version 1)
Quarter: 2013Q3

REPORT INFORMATION
  Report Type: Spontaneous
  Country: US (occurrence: US)
  Receive Date: 20130724
  Receipt Date: 20130724
  Transmission Date: 20140515
  Serious: No
  Sender: FDA-Public Use
  Company Number: US-PFIZER INC-2013215412

PATIENT
  Age: 57 Year
  Sex: Female
  Weight: 90.7 kg

DRUGS (5)
  1. PRISTIQ [Suspect]
     Indication: DEPRESSION
     Dosage: 100 MG, DAILY
  2. PRISTIQ [Suspect]
     Dosage: 200 MG, UNK
  3. RISPERIDONE [Suspect]
     Dosage: UNK
  4. SYNTHROID [Concomitant]
     Indication: THYROID DISORDER
     Dosage: UNK
  5. KADIAN [Concomitant]
     Indication: PAIN
     Dosage: UNK

REACTIONS (2)
  - Paraesthesia [Not Recovered/Not Resolved]
  - Weight increased [Unknown]
